FAERS Safety Report 4733401-2 (Version None)
Quarter: 2005Q3

REPORT INFORMATION
  Report Type: 
  Country: None (occurrence: None)
  Receive Date: 20050801
  Receipt Date: 20050801
  Transmission Date: 20060218
  Serious: Yes (Life-Threatening, Hospitalization)
  Sender: FDA-Public Use
  Company Number: None

PATIENT
  Age: 54 Year
  Sex: Male
  Weight: 77 kg

DRUGS (3)
  1. REOPRO [Suspect]
     Indication: CORONARY ARTERIAL STENT INSERTION
     Dosage: 21 CC/HR X 12 HRS IV
     Route: 042
     Dates: start: 20050321, end: 20050322
  2. PLAVIX [Suspect]
     Dosage: 75 MG QD PO
     Route: 048
     Dates: start: 20050321, end: 20050322
  3. ASPIRIN [Concomitant]

REACTIONS (4)
  - EPISTAXIS [None]
  - HAEMATEMESIS [None]
  - POST PROCEDURAL COMPLICATION [None]
  - THROMBOSIS [None]
